FAERS Safety Report 6764905-9 (Version None)
Quarter: 2010Q2

REPORT INFORMATION
  Report Type: 
  Country: None (occurrence: None)
  Receive Date: 20100609
  Receipt Date: 20100502
  Transmission Date: 20101027
  Serious: No
  Sender: FDA-Public Use
  Company Number: 2010010833

PATIENT
  Age: 35 Month
  Sex: Male

DRUGS (1)
  1. CHILDREN'S ZYRTEC ALLERGY [Suspect]
     Indication: NASAL CONGESTION
     Dosage: TWICE DAILY,ORAL
     Route: 048
     Dates: start: 20100426, end: 20100430

REACTIONS (4)
  - DRUG INEFFECTIVE [None]
  - NASAL CONGESTION [None]
  - OFF LABEL USE [None]
  - PRODUCT QUALITY ISSUE [None]
